FAERS Safety Report 5512579-7 (Version None)
Quarter: 2007Q4

REPORT INFORMATION
  Report Type: 
  Country: None (occurrence: None)
  Receive Date: 20071107
  Receipt Date: 20071023
  Transmission Date: 20080405
  Serious: Yes (Hospitalization, Other)
  Sender: FDA-Public Use
  Company Number: 2007001759

PATIENT
  Age: 66 Year
  Sex: Female

DRUGS (1)
  1. TARCEVA [Suspect]
     Indication: NON-SMALL CELL LUNG CANCER
     Dosage: 150 MG, ORAL
     Route: 048
     Dates: start: 20060405

REACTIONS (6)
  - ALOPECIA [None]
  - ECZEMA [None]
  - EPILEPSY [None]
  - HEADACHE [None]
  - HYPOTHYROIDISM [None]
  - METASTASES TO MENINGES [None]
